FAERS Safety Report 5535363-7 (Version None)
Quarter: 2007Q4

REPORT INFORMATION
  Report Type: 
  Country: None (occurrence: None)
  Receive Date: 20071206
  Receipt Date: 20071123
  Transmission Date: 20080405
  Serious: Yes (Other)
  Sender: FDA-Public Use
  Company Number: US-PFIZER INC-2007073708

PATIENT
  Sex: Female
  Weight: 75.8 kg

DRUGS (6)
  1. CHANTIX [Suspect]
     Indication: SMOKING CESSATION THERAPY
     Dates: start: 20070614, end: 20070914
  2. XANAX [Suspect]
     Indication: DEPRESSION
  3. ACETYLSALICYLIC ACID SRT [Concomitant]
  4. SYNTHROID [Concomitant]
  5. ESTRATEST H.S. [Concomitant]
     Indication: HORMONE REPLACEMENT THERAPY
  6. XENICAL [Concomitant]

REACTIONS (7)
  - CRYING [None]
  - DEPENDENCE [None]
  - DEPRESSED MOOD [None]
  - DEPRESSION [None]
  - DRUG INEFFECTIVE [None]
  - PANIC ATTACK [None]
  - PARAESTHESIA [None]
